FAERS Safety Report 25789495 (Version 1)
Quarter: 2025Q3

REPORT INFORMATION
  Report Type: Spontaneous
  Country: US (occurrence: US)
  Receive Date: 20250911
  Receipt Date: 20250911
  Transmission Date: 20251021
  Serious: No
  Sender: KARYOPHARM THERAPEUTICS
  Company Number: US-KARYOPHARM-2025KPT100695

PATIENT

DRUGS (3)
  1. SELINEXOR [Suspect]
     Active Substance: SELINEXOR
     Indication: Plasma cell myeloma
  2. KYPROLIS [Concomitant]
     Active Substance: CARFILZOMIB
  3. VELCADE [Concomitant]
     Active Substance: BORTEZOMIB

REACTIONS (3)
  - Plasma cell myeloma [Unknown]
  - Muscular weakness [Unknown]
  - Fatigue [Unknown]
